FAERS Safety Report 5056174-5 (Version None)
Quarter: 2006Q2

REPORT INFORMATION
  Report Type: 
  Country: None (occurrence: None)
  Receive Date: 20060616
  Receipt Date: 20050831
  Transmission Date: 20061013
  Serious: Yes (Hospitalization)
  Sender: FDA-Public Use
  Company Number: PHEH2005US08389

PATIENT
  Age: 80 Year
  Sex: Female

DRUGS (3)
  1. EXELON [Suspect]
     Indication: DEMENTIA ALZHEIMER'S TYPE
     Dosage: SEE IMAGE
     Route: 048
     Dates: end: 20050727
  2. EXELON [Suspect]
     Indication: DEMENTIA ALZHEIMER'S TYPE
     Dosage: SEE IMAGE
     Route: 048
     Dates: start: 20000701
  3. ZYPREXA [Suspect]
     Dosage: 2.5 MG,QD,ORAL
     Route: 048
     Dates: start: 20000101, end: 20050722

REACTIONS (4)
  - DECREASED APPETITE [None]
  - FATIGUE [None]
  - LETHARGY [None]
  - VOMITING [None]
